FAERS Safety Report 10420717 (Version 1)
Quarter: 2014Q3

REPORT INFORMATION
  Report Type: Spontaneous
  Country: US (occurrence: None)
  Receive Date: 20140708
  Receipt Date: 20140708
  Transmission Date: 20150326
  Serious: Yes (Other)
  Sender: FDA-Public Use
  Company Number: 1362525

PATIENT
  Age: 68 Year
  Sex: Female
  Weight: 70.31 kg

DRUGS (4)
  1. CARBIDOPA/LEVODOPA [Concomitant]
     Active Substance: CARBIDOPA\LEVODOPA
  2. NIX [Suspect]
     Active Substance: PERMETHRIN
     Indication: LICE INFESTATION
     Dosage: APPLIED TOPICALLY X2
     Route: 061
     Dates: start: 20140407, end: 20140408
  3. AMANTADINE [Concomitant]
     Active Substance: AMANTADINE
  4. MIRAPEX [Concomitant]
     Active Substance: PRAMIPEXOLE DIHYDROCHLORIDE

REACTIONS (2)
  - Oedema peripheral [None]
  - Face oedema [None]
